FAERS Safety Report 4429517-0 (Version None)
Quarter: 2004Q3

REPORT INFORMATION
  Report Type: 
  Country: None (occurrence: None)
  Receive Date: 20040816
  Receipt Date: 20040729
  Transmission Date: 20050211
  Serious: Yes (Other)
  Sender: FDA-Public Use
  Company Number: A0520250A

PATIENT
  Age: 30 Year
  Sex: Male

DRUGS (2)
  1. NICODERM CQ [Suspect]
     Indication: SMOKING CESSATION THERAPY
     Dosage: 14 MG/ TRASDERMAL
     Route: 062
     Dates: start: 20040630, end: 20040727
  2. NICODERM CQ [Suspect]
     Indication: SMOKING CESSATION THERAPY
     Dosage: 7 MG/ TRANSDERMAL
     Route: 062
     Dates: start: 20040630, end: 20040727

REACTIONS (1)
  - ASTHMA [None]
